FAERS Safety Report 24371295 (Version 1)
Quarter: 2024Q3

REPORT INFORMATION
  Report Type: Spontaneous
  Country: US (occurrence: US)
  Receive Date: 20240927
  Receipt Date: 20240927
  Transmission Date: 20241017
  Serious: Yes (Hospitalization)
  Sender: MYLAN
  Company Number: US-MYLANLABS-2024M1086191

PATIENT
  Age: 23 Year
  Sex: Male

DRUGS (11)
  1. LEVETIRACETAM [Suspect]
     Active Substance: LEVETIRACETAM
     Indication: Temporal lobe epilepsy
     Dosage: 1500 MILLIGRAM, TID, THREE TIMES DAILY
     Route: 065
  2. LEVETIRACETAM [Suspect]
     Active Substance: LEVETIRACETAM
     Dosage: UNK, THERAPY TAPERED AND THEN RESUMED
     Route: 065
  3. TIAGABINE [Suspect]
     Active Substance: TIAGABINE
     Indication: Temporal lobe epilepsy
     Dosage: 12 MILLIGRAM, TID, THREE TIMES DAILY
     Route: 065
  4. TIAGABINE [Suspect]
     Active Substance: TIAGABINE
     Dosage: 16 MILLIGRAM, TID, THREE TIMES DAILY
     Route: 065
  5. TIAGABINE [Suspect]
     Active Substance: TIAGABINE
     Dosage: 56 MILLIGRAM, QD
     Route: 065
  6. TIAGABINE [Suspect]
     Active Substance: TIAGABINE
     Dosage: UNK, THERAPY TAPERED AND THEN RESUMED
     Route: 065
  7. LACOSAMIDE [Suspect]
     Active Substance: LACOSAMIDE
     Indication: Temporal lobe epilepsy
     Dosage: 200 MILLIGRAM, BID
     Route: 065
  8. LACOSAMIDE [Suspect]
     Active Substance: LACOSAMIDE
     Dosage: 600 MILLIGRAM, QD
     Route: 065
  9. LACOSAMIDE [Suspect]
     Active Substance: LACOSAMIDE
     Dosage: UNK, : THERAPY TAPERED AND THEN RESUMED
     Route: 065
  10. ESLICARBAZEPINE [Suspect]
     Active Substance: ESLICARBAZEPINE
     Indication: Temporal lobe epilepsy
     Dosage: 800 MILLIGRAM, QD
     Route: 065
  11. ESLICARBAZEPINE [Suspect]
     Active Substance: ESLICARBAZEPINE
     Dosage: UNK, THERAPY TAPERED AND THEN RESUMED
     Route: 065

REACTIONS (1)
  - Drug ineffective [Unknown]
